FAERS Safety Report 10142710 (Version 2)
Quarter: 2014Q2

REPORT INFORMATION
  Report Type: Spontaneous
  Country: US (occurrence: US)
  Receive Date: 20140430
  Receipt Date: 20140430
  Transmission Date: 20141212
  Serious: Yes (Hospitalization, Other)
  Sender: FDA-Public Use
  Company Number: US-ASTRAZENECA-2006UW15664

PATIENT
  Age: 57 Year
  Sex: Female
  Weight: 86.2 kg

DRUGS (16)
  1. CRESTOR [Suspect]
     Indication: BLOOD CHOLESTEROL INCREASED
     Route: 048
     Dates: start: 2009, end: 201402
  2. CRESTOR [Suspect]
     Indication: BLOOD CHOLESTEROL ABNORMAL
     Route: 048
     Dates: start: 2009, end: 201402
  3. CRESTOR [Suspect]
     Indication: BLOOD CHOLESTEROL INCREASED
     Route: 048
  4. CRESTOR [Suspect]
     Indication: BLOOD CHOLESTEROL ABNORMAL
     Route: 048
  5. SYNTHROID [Concomitant]
  6. TRICOR [Concomitant]
  7. FLEXERIL [Concomitant]
     Indication: FIBROMYALGIA
     Route: 048
     Dates: start: 1991
  8. PROZAC [Concomitant]
     Indication: FIBROMYALGIA
     Route: 048
     Dates: start: 1991
  9. PRADAXA [Concomitant]
     Indication: BLOOD DISORDER
     Route: 048
     Dates: start: 2011
  10. EFFIENT [Concomitant]
     Indication: DRUG INEFFECTIVE
     Route: 048
     Dates: start: 2011
  11. ASPIRIN [Concomitant]
     Indication: DRUG THERAPY
     Route: 048
     Dates: start: 2011
  12. JANUMET [Concomitant]
     Indication: TYPE 2 DIABETES MELLITUS
     Route: 048
     Dates: start: 2013
  13. NIASPAN [Concomitant]
     Indication: BLOOD CHOLESTEROL ABNORMAL
     Route: 048
     Dates: start: 2011
  14. GABAPENTIN [Concomitant]
     Indication: FIBROMYALGIA
     Route: 048
     Dates: start: 201401
  15. LEVOTHYROXINE [Concomitant]
     Indication: THYROID DISORDER
     Route: 048
     Dates: start: 1992
  16. CARVEDILOL [Concomitant]
     Indication: BLOOD PRESSURE ABNORMAL
     Route: 048
     Dates: start: 2009

REACTIONS (13)
  - Cardiac disorder [Unknown]
  - Vascular occlusion [Unknown]
  - Myocardial infarction [Unknown]
  - Transient ischaemic attack [Unknown]
  - Aphasia [Unknown]
  - Dysarthria [Unknown]
  - Abasia [Unknown]
  - Fall [Unknown]
  - Haemorrhage [Unknown]
  - Urine analysis abnormal [Unknown]
  - Pain in jaw [Recovered/Resolved]
  - Fibromyalgia [Unknown]
  - Intentional product misuse [Unknown]
